FAERS Safety Report 5861951-4 (Version None)
Quarter: 2008Q3

REPORT INFORMATION
  Report Type: 
  Country: None (occurrence: None)
  Receive Date: 20080827
  Receipt Date: 20080723
  Transmission Date: 20090109
  Serious: No
  Sender: FDA-Public Use
  Company Number: US-ABBOTT-08P-163-0465329-00

PATIENT
  Sex: Female
  Weight: 64.468 kg

DRUGS (3)
  1. COATED PDS [Suspect]
     Indication: BLOOD TRIGLYCERIDES INCREASED
     Route: 048
     Dates: start: 20080716, end: 20080720
  2. DYAZIDE [Concomitant]
     Indication: HYPERTENSION
     Route: 048
  3. MELOXICAM [Concomitant]
     Indication: ARTHRITIS
     Route: 048

REACTIONS (5)
  - DIZZINESS [None]
  - FEELING HOT [None]
  - FLUSHING [None]
  - POLYURIA [None]
  - PRURITUS [None]
